FAERS Safety Report 8351255-2 (Version None)
Quarter: 2012Q2

REPORT INFORMATION
  Report Type: 
  Country: None (occurrence: None)
  Receive Date: 20120510
  Receipt Date: 20120504
  Transmission Date: 20120825
  Serious: Yes (Hospitalization)
  Sender: FDA-Public Use
  Company Number: IT-ASTRAZENECA-2012SE28900

PATIENT
  Age: 29437 Day
  Sex: Male

DRUGS (2)
  1. CRESTOR [Suspect]
     Indication: HYPERCHOLESTEROLAEMIA
     Route: 048
     Dates: start: 20120426, end: 20120427
  2. AUGMENTIN [Suspect]
     Indication: TOOTHACHE
     Dosage: 875/125 MG, 2 G DAILY
     Route: 048
     Dates: start: 20120426, end: 20120427

REACTIONS (2)
  - RASH [None]
  - PYREXIA [None]
